FAERS Safety Report 20134077 (Version 1)
Quarter: 2021Q4

REPORT INFORMATION
  Report Type: Spontaneous
  Country: US (occurrence: US)
  Receive Date: 20211201
  Receipt Date: 20211201
  Transmission Date: 20220303
  Serious: Yes (Other)
  Sender: FDA-Public Use
  Company Number: US-Blueprint Medicines Corporation-SP-US-2021-002306

PATIENT
  Age: 64 Year
  Sex: Male

DRUGS (2)
  1. AYVAKIT [Suspect]
     Active Substance: AVAPRITINIB
     Indication: Systemic mastocytosis
     Dosage: TAKE 100 MILLIGRAMS BY MOUTH ON TUE, THURS, SAT, AND SUN
     Route: 048
     Dates: start: 20160901
  2. AYVAKIT [Suspect]
     Active Substance: AVAPRITINIB
     Dosage: TAKE 200 MILLIGRAMS BY MOUTH ON MON, WED, AND FRI
     Route: 048
     Dates: start: 20160901

REACTIONS (4)
  - Hallucination [Not Recovered/Not Resolved]
  - Muscular weakness [Not Recovered/Not Resolved]
  - Pruritus [Not Recovered/Not Resolved]
  - Off label use [Unknown]

NARRATIVE: CASE EVENT DATE: 20160901
